FAERS Safety Report 5381346-X (Version None)
Quarter: 2007Q2

REPORT INFORMATION
  Report Type: 
  Country: None (occurrence: None)
  Receive Date: 20070629
  Receipt Date: 20061114
  Transmission Date: 20071010
  Serious: Yes (Hospitalization)
  Sender: FDA-Public Use
  Company Number: 2006141019

PATIENT
  Age: 78 Year
  Sex: Male

DRUGS (13)
  1. ZOLOFT [Suspect]
     Indication: DEPRESSION
     Dosage: 200 MG (1 IN 1 D), ORAL
     Route: 048
     Dates: end: 20060616
  2. NAMENDA [Suspect]
     Indication: DEMENTIA ALZHEIMER'S TYPE
     Dosage: ORAL
     Route: 048
     Dates: start: 20050101
  3. WARFARIN SODIUM [Concomitant]
  4. RISPERDAL [Concomitant]
  5. GALANTAMINE (GALANTAMINE) [Concomitant]
  6. ZANTAC 150 [Concomitant]
  7. MONTELUKAST SODIUM [Concomitant]
  8. LORAZEPAM [Concomitant]
  9. CLARITIN [Concomitant]
  10. ALL OTHER THERAPEUTIC PRODUCTS (ALL OTHER THERAPEUTIC  PRODUCTS) [Concomitant]
  11. NEXIUM [Concomitant]
  12. COLACE (DOCUSATE SODIUM) [Concomitant]
  13. ACETAMINOPHEN [Concomitant]

REACTIONS (1)
  - PLATELET COUNT DECREASED [None]
